FAERS Safety Report 5303205-0 (Version None)
Quarter: 2007Q2

REPORT INFORMATION
  Report Type: 
  Country: None (occurrence: None)
  Receive Date: 20070420
  Receipt Date: 20070412
  Transmission Date: 20071010
  Serious: Yes (Other)
  Sender: FDA-Public Use
  Company Number: BR-ROCHE-493183

PATIENT
  Age: 26 Year
  Sex: Female

DRUGS (3)
  1. ISOTRETINOIN [Suspect]
     Indication: ACNE
     Route: 048
     Dates: start: 20070215, end: 20070215
  2. ISOTRETINOIN [Suspect]
     Route: 048
     Dates: start: 20070315, end: 20070405
  3. MICROVLAR [Concomitant]
     Indication: CONTRACEPTION
     Route: 048
     Dates: start: 19990615, end: 20070329

REACTIONS (2)
  - NO ADVERSE EFFECT [None]
  - PREGNANCY [None]
